FAERS Safety Report 17952622 (Version 1)
Quarter: 2020Q2

REPORT INFORMATION
  Report Type: Other
  Country: AU (occurrence: AU)
  Receive Date: 20200626
  Receipt Date: 20200626
  Transmission Date: 20200714
  Serious: Yes (Hospitalization)
  Sender: FDA-Public Use
  Company Number: AU-B.BRAUN MEDICAL INC.-2086730

PATIENT
  Age: 45 Year
  Sex: Female

DRUGS (1)
  1. DEXTROSE INJECTIONS USP 0264-7510-00 0264-7510-20 [Suspect]
     Active Substance: DEXTROSE
     Indication: OVERDOSE
     Route: 042

REACTIONS (1)
  - Hepatic steatosis [None]
